FAERS Safety Report 17818703 (Version 2)
Quarter: 2020Q2

REPORT INFORMATION
  Report Type: Report from Study
  Country: IT (occurrence: IT)
  Receive Date: 20200522
  Receipt Date: 20200527
  Transmission Date: 20200714
  Serious: Yes (Death, Other)
  Sender: FDA-Public Use
  Company Number: IT-BRISTOL-MYERS SQUIBB COMPANY-BMS-2020-039975

PATIENT
  Age: 85 Year
  Sex: Male

DRUGS (1)
  1. APIXABAN [Suspect]
     Active Substance: APIXABAN
     Indication: THROMBOSIS PROPHYLAXIS
     Dosage: 2.5 MILLIGRAM
     Route: 048
     Dates: start: 20190201

REACTIONS (7)
  - Loss of consciousness [Fatal]
  - Gaze palsy [Fatal]
  - Hemiplegia [Fatal]
  - Drug ineffective [Fatal]
  - Ischaemic stroke [Fatal]
  - Vomiting [Fatal]
  - Speech disorder [Fatal]

NARRATIVE: CASE EVENT DATE: 20200426
